FAERS Safety Report 5205224-1 (Version None)
Quarter: 2006Q4

REPORT INFORMATION
  Report Type: 
  Country: None (occurrence: None)
  Receive Date: 20061027
  Receipt Date: 20060217
  Transmission Date: 20070319
  Serious: Yes (Hospitalization, Other)
  Sender: FDA-Public Use
  Company Number: HQWYE178918MAR05

PATIENT
  Age: 55 Year
  Sex: Female
  Weight: 68.1 kg

DRUGS (3)
  1. PREMARIN [Suspect]
     Indication: HOT FLUSH
  2. CYCRIN [Suspect]
     Indication: DRUG USE FOR UNKNOWN INDICATION
  3. SYNTHROID [Concomitant]

REACTIONS (1)
  - BREAST CANCER [None]
